FAERS Safety Report 21103639 (Version 2)
Quarter: 2022Q3

REPORT INFORMATION
  Report Type: Report from Study
  Country: GB (occurrence: GB)
  Receive Date: 20220720
  Receipt Date: 20220729
  Transmission Date: 20221027
  Serious: Yes (Death, Hospitalization, Congenital Anomaly, Other)
  Sender: FDA-Public Use
  Company Number: GB-MYLANLABS-2019M1036947

PATIENT
  Age: 4 Month
  Sex: Female
  Weight: 3.43 kg

DRUGS (22)
  1. RALTEGRAVIR POTASSIUM [Suspect]
     Active Substance: RALTEGRAVIR POTASSIUM
     Indication: Product used for unknown indication
     Dosage: UNK, 1200 OT
     Route: 064
  2. ABACAVIR SULFATE [Suspect]
     Active Substance: ABACAVIR SULFATE
     Indication: HIV infection
     Dosage: 1 DF, QD
     Route: 064
  3. ABACAVIR SULFATE [Suspect]
     Active Substance: ABACAVIR SULFATE
     Indication: Product used for unknown indication
     Dosage: 1 DF, QD
     Route: 064
  4. ABACAVIR SULFATE [Suspect]
     Active Substance: ABACAVIR SULFATE
     Dosage: 1 DF, QD
     Route: 064
  5. COBICISTAT [Suspect]
     Active Substance: COBICISTAT
     Indication: Product used for unknown indication
     Dosage: 1 DF, QD
     Route: 064
  6. COBICISTAT [Suspect]
     Active Substance: COBICISTAT
     Indication: Product used for unknown indication
     Dosage: 1 DF, QD
     Route: 064
  7. DARUNAVIR [Suspect]
     Active Substance: DARUNAVIR
     Indication: HIV infection
     Dosage: 1 TABLET/CAPSULE
     Route: 064
  8. DARUNAVIR [Suspect]
     Active Substance: DARUNAVIR
     Dosage: 1 TABLET/CAPSULE
     Route: 064
  9. DARUNAVIR [Suspect]
     Active Substance: DARUNAVIR
     Dosage: UNK, TABLET
     Route: 064
  10. LAMIVUDINE [Suspect]
     Active Substance: LAMIVUDINE
     Indication: HIV infection
     Dosage: 1 DF, QD
     Route: 064
  11. LAMIVUDINE [Suspect]
     Active Substance: LAMIVUDINE
     Indication: Product used for unknown indication
     Dosage: 1 DOSAGE FORM, ONCE A DAY
     Route: 064
  12. LAMIVUDINE [Suspect]
     Active Substance: LAMIVUDINE
     Dosage: 1 DF, QD
     Route: 064
  13. LAMIVUDINE [Suspect]
     Active Substance: LAMIVUDINE
     Dosage: 1 DOSAGE FORM, ONCE A DAY
     Route: 065
  14. PREZCOBIX [Suspect]
     Active Substance: COBICISTAT\DARUNAVIR ETHANOLATE
     Indication: HIV infection
     Dosage: 1 DOSAGE FORM, QD
     Route: 064
  15. PREZCOBIX [Suspect]
     Active Substance: COBICISTAT\DARUNAVIR ETHANOLATE
     Indication: Product used for unknown indication
     Dosage: 1 DOSAGE FORM, QD
     Route: 064
  16. PREZCOBIX [Suspect]
     Active Substance: COBICISTAT\DARUNAVIR ETHANOLATE
     Dosage: 1 DF, QD
     Route: 064
  17. PREZCOBIX [Suspect]
     Active Substance: COBICISTAT\DARUNAVIR ETHANOLATE
     Dosage: 1 DOSAGE FORM, QD (1 DOSAGE FORM, ONCE A DAY), TABLET
     Route: 064
  18. COBICISTAT\DARUNAVIR ETHANOLATE [Suspect]
     Active Substance: COBICISTAT\DARUNAVIR ETHANOLATE
     Indication: HIV infection
     Dosage: PARENT^S DOSE: 1 TABLET/CAPSULE, QD
     Route: 064
  19. COBICISTAT\DARUNAVIR ETHANOLATE [Suspect]
     Active Substance: COBICISTAT\DARUNAVIR ETHANOLATE
     Dosage: PARENT^S DOSE: 1 TABLET/CAPSULE
     Route: 064
  20. ABACAVIR AND LAMIVUDINE [Suspect]
     Active Substance: ABACAVIR SULFATE\LAMIVUDINE
     Indication: HIV infection
     Dosage: 1 DF, QD
     Route: 064
  21. ABACAVIR AND LAMIVUDINE [Suspect]
     Active Substance: ABACAVIR SULFATE\LAMIVUDINE
     Dosage: 1 DF (TABS/CAPS), QD
     Route: 064
  22. ABACAVIR\LAMIVUDINE [Suspect]
     Active Substance: ABACAVIR\LAMIVUDINE
     Indication: HIV infection
     Dosage: 1 DOSAGE FORM, QD (1 TABLET/CAPSULE)
     Route: 064

REACTIONS (9)
  - Foetal growth restriction [Fatal]
  - Foetal growth abnormality [Fatal]
  - Brain injury [Fatal]
  - Gastroschisis [Fatal]
  - Congenital intestinal malformation [Fatal]
  - Hydrocephalus [Fatal]
  - Spina bifida [Fatal]
  - Foetal death [Fatal]
  - Foetal exposure during pregnancy [Fatal]

NARRATIVE: CASE EVENT DATE: 20190107
